FAERS Safety Report 7260723-6 (Version None)
Quarter: 2011Q1

REPORT INFORMATION
  Report Type: 
  Country: None (occurrence: None)
  Receive Date: 20110130
  Receipt Date: 20101222
  Transmission Date: 20110831
  Serious: No
  Sender: FDA-Public Use
  Company Number: US-ABBOTT-10P-163-0693281-00

PATIENT
  Sex: Male
  Weight: 72.186 kg

DRUGS (6)
  1. MORPHINE [Concomitant]
     Indication: PAIN
     Dosage: EVERY 6-8 HOURS AS NEEDED
  2. ASCORBIC ACID [Concomitant]
     Indication: PRODUCT USED FOR UNKNOWN INDICATION
  3. HUMIRA [Suspect]
     Indication: CROHN'S DISEASE
     Route: 058
     Dates: start: 20070101
  4. MORPHINE [Concomitant]
     Indication: PAIN
     Dosage: TWO EVERY FOUR HOURS AS NEEDED
  5. HUMIRA [Suspect]
     Indication: RHEUMATOID ARTHRITIS
  6. BOOST SUPPLEMENT [Concomitant]
     Indication: PRODUCT USED FOR UNKNOWN INDICATION

REACTIONS (4)
  - CROHN'S DISEASE [None]
  - ARTHRALGIA [None]
  - DRUG DOSE OMISSION [None]
  - WEIGHT DECREASED [None]
